FAERS Safety Report 5222992-3 (Version None)
Quarter: 2007Q1

REPORT INFORMATION
  Report Type: 
  Country: None (occurrence: None)
  Receive Date: 20061201
  Receipt Date: 20060708
  Transmission Date: 20070707
  Serious: No
  Sender: FDA-Public Use
  Company Number: 2006PV017180

PATIENT
  Age: 58 Year
  Sex: Male
  Weight: 101.1521 kg

DRUGS (6)
  1. BYETTA [Suspect]
     Indication: DIABETES MELLITUS NON-INSULIN-DEPENDENT
     Dosage: 10 MCG QPM SC ; 10 MCG BID SC ; 5 MCG BID SC
     Route: 058
     Dates: start: 20060101, end: 20060201
  2. BYETTA [Suspect]
     Indication: DIABETES MELLITUS NON-INSULIN-DEPENDENT
     Dosage: 10 MCG QPM SC ; 10 MCG BID SC ; 5 MCG BID SC
     Route: 058
     Dates: start: 20060201, end: 20060701
  3. BYETTA [Suspect]
     Indication: DIABETES MELLITUS NON-INSULIN-DEPENDENT
     Dosage: 10 MCG QPM SC ; 10 MCG BID SC ; 5 MCG BID SC
     Route: 058
     Dates: start: 20060701
  4. GLUCOPHAGE [Concomitant]
  5. AVANDIA [Concomitant]
  6. GLYBURIDE AND METFORMIN HCL [Concomitant]

REACTIONS (5)
  - BLOOD GLUCOSE DECREASED [None]
  - BLOOD GLUCOSE INCREASED [None]
  - DYSGEUSIA [None]
  - NAUSEA [None]
  - TREMOR [None]
